FAERS Safety Report 7127987-0 (Version None)
Quarter: 2010Q4

REPORT INFORMATION
  Report Type: 
  Country: None (occurrence: None)
  Receive Date: 20101130
  Receipt Date: 20101126
  Transmission Date: 20110411
  Serious: Yes (Death)
  Sender: FDA-Public Use
  Company Number: CA-ASTRAZENECA-2010SE56270

PATIENT
  Age: 95 Year
  Sex: Male

DRUGS (1)
  1. SEROQUEL [Suspect]
     Route: 048

REACTIONS (5)
  - CONFUSIONAL STATE [None]
  - CONTUSION [None]
  - DEATH [None]
  - FALL [None]
  - SKIN LACERATION [None]
